FAERS Safety Report 7922913-6 (Version None)
Quarter: 2011Q4

REPORT INFORMATION
  Report Type: 
  Country: None (occurrence: None)
  Receive Date: 20111117
  Receipt Date: 20110825
  Transmission Date: 20120403
  Serious: No
  Sender: FDA-Public Use
  Company Number: US-ALLERGAN-1111326US

PATIENT
  Age: 56 Year
  Sex: Male

DRUGS (1)
  1. LASTACAFT [Suspect]
     Indication: CONJUNCTIVITIS ALLERGIC
     Dosage: 2 GTT, SINGLE
     Route: 047
     Dates: start: 20110823, end: 20110823

REACTIONS (3)
  - DACRYOSTENOSIS ACQUIRED [None]
  - EYE DISORDER [None]
  - OCULAR HYPERAEMIA [None]
